FAERS Safety Report 6053296-7 (Version None)
Quarter: 2009Q1

REPORT INFORMATION
  Report Type: 
  Country: None (occurrence: None)
  Receive Date: 20090127
  Receipt Date: 20090121
  Transmission Date: 20090719
  Serious: Yes (Other)
  Sender: FDA-Public Use
  Company Number: A0750659A

PATIENT
  Age: 29 Year
  Sex: Male

DRUGS (1)
  1. ADVAIR DISKUS 100/50 [Suspect]
     Indication: DRUG USE FOR UNKNOWN INDICATION
     Route: 055

REACTIONS (4)
  - ASTHMA [None]
  - COUGH [None]
  - DYSPNOEA [None]
  - PRODUCT QUALITY ISSUE [None]
